FAERS Safety Report 17673491 (Version 1)
Quarter: 2020Q2

REPORT INFORMATION
  Report Type: Spontaneous
  Country: FR (occurrence: FR)
  Receive Date: 20200415
  Receipt Date: 20200415
  Transmission Date: 20200713
  Serious: Yes (Hospitalization)
  Sender: FDA-Public Use
  Company Number: FR-BAUSCH-BL-2020-011344

PATIENT
  Age: 77 Year
  Sex: Male

DRUGS (12)
  1. METFORMIN [Suspect]
     Active Substance: METFORMIN HYDROCHLORIDE
     Indication: TYPE 2 DIABETES MELLITUS
     Route: 048
     Dates: end: 20200310
  2. LERCANIDIPINE HYDROCHLORIDE [Concomitant]
     Active Substance: LERCANIDIPINE HYDROCHLORIDE
     Indication: PRODUCT USED FOR UNKNOWN INDICATION
  3. LYRICA [Concomitant]
     Active Substance: PREGABALIN
     Indication: PRODUCT USED FOR UNKNOWN INDICATION
  4. FUROSEMIDE. [Suspect]
     Active Substance: FUROSEMIDE
     Indication: HYPERTENSION
     Route: 048
     Dates: end: 20200310
  5. VELMETIA [Suspect]
     Active Substance: METFORMIN\SITAGLIPTIN
     Indication: TYPE 2 DIABETES MELLITUS
     Dosage: 50 MG/1000 MG
     Route: 048
     Dates: end: 20200310
  6. ALLOPURINOL. [Concomitant]
     Active Substance: ALLOPURINOL
     Indication: PRODUCT USED FOR UNKNOWN INDICATION
  7. KARDEGIC [Concomitant]
     Active Substance: ASPIRIN DL-LYSINE
     Indication: PRODUCT USED FOR UNKNOWN INDICATION
  8. GLICLAZIDE [Concomitant]
     Active Substance: GLICLAZIDE
     Indication: PRODUCT USED FOR UNKNOWN INDICATION
  9. NEBIVOLOL. [Concomitant]
     Active Substance: NEBIVOLOL
     Indication: PRODUCT USED FOR UNKNOWN INDICATION
  10. ZANEXTRA [Suspect]
     Active Substance: ENALAPRIL MALEATE\LERCANIDIPINE HYDROCHLORIDE
     Indication: PRODUCT USED FOR UNKNOWN INDICATION
     Dosage: 20 MG/20 MG
     Route: 048
  11. PRAVASTATINE [Concomitant]
     Active Substance: PRAVASTATIN
     Indication: PRODUCT USED FOR UNKNOWN INDICATION
  12. TEMERITDUO [Suspect]
     Active Substance: HYDROCHLOROTHIAZIDE\NEBIVOLOL HYDROCHLORIDE
     Indication: HYPERTENSION
     Dosage: 5 MG/12.5 MG
     Route: 048
     Dates: end: 20200310

REACTIONS (3)
  - Malaise [Recovered/Resolved]
  - Hyperlactacidaemia [Recovering/Resolving]
  - Acute kidney injury [Unknown]

NARRATIVE: CASE EVENT DATE: 20200308
